FAERS Safety Report 9497256 (Version 2)
Quarter: 2013Q3

REPORT INFORMATION
  Report Type: Spontaneous
  Country: AU (occurrence: AU)
  Receive Date: 20130904
  Receipt Date: 20130913
  Transmission Date: 20140515
  Serious: Yes (Other)
  Sender: FDA-Public Use
  Company Number: PHHY2013AU096471

PATIENT
  Sex: 0

DRUGS (1)
  1. TRILEPTAL [Suspect]
     Dosage: 600 MG, UNK

REACTIONS (1)
  - Convulsion [Unknown]
